FAERS Safety Report 7414284-9 (Version None)
Quarter: 2011Q2

REPORT INFORMATION
  Report Type: 
  Country: None (occurrence: None)
  Receive Date: 20110414
  Receipt Date: 20110411
  Transmission Date: 20111010
  Serious: Yes (Hospitalization, Disabling, Other)
  Sender: FDA-Public Use
  Company Number: US-PFIZER INC-2011012904

PATIENT
  Sex: Male

DRUGS (8)
  1. ATIVAN [Concomitant]
     Indication: ANXIETY
     Dosage: UNK
     Dates: start: 19910101
  2. VITAMIN B-12 [Concomitant]
     Indication: MEDICAL DIET
     Dosage: UNK
     Dates: start: 20040101
  3. CHANTIX [Suspect]
     Indication: SMOKING CESSATION THERAPY
     Dosage: 0.5MG ; 1MG
     Dates: start: 20080305, end: 20080716
  4. PERCOCET [Concomitant]
     Indication: PAIN
     Dosage: UNK
     Dates: start: 19910101, end: 20100101
  5. PERCOCET [Concomitant]
     Indication: RESTLESS LEGS SYNDROME
  6. IBUPROFEN [Concomitant]
     Indication: PAIN
     Dosage: UNK
     Dates: start: 20000101, end: 20100101
  7. SIMVASTATIN [Concomitant]
     Indication: BLOOD CHOLESTEROL INCREASED
     Dosage: UNK
     Dates: start: 20040101
  8. DOCUSATE SODIUM/SENNOSIDE A+B [Concomitant]
     Indication: DRUG ABUSE
     Dosage: UNK
     Dates: start: 20050101

REACTIONS (9)
  - AGGRESSION [None]
  - INSOMNIA [None]
  - ANXIETY [None]
  - DEPRESSION [None]
  - MOOD SWINGS [None]
  - SUICIDE ATTEMPT [None]
  - INTENTIONAL OVERDOSE [None]
  - ANGER [None]
  - LOSS OF CONSCIOUSNESS [None]
